FAERS Safety Report 12168738 (Version 2)
Quarter: 2016Q1

REPORT INFORMATION
  Report Type: Spontaneous
  Country: ES (occurrence: ES)
  Receive Date: 20160310
  Receipt Date: 20160324
  Transmission Date: 20160526
  Serious: Yes (Hospitalization)
  Sender: FDA-Public Use
  Company Number: ES-EMD SERONO-8072171

PATIENT
  Age: 7 Year
  Sex: Female

DRUGS (2)
  1. SAIZEN [Suspect]
     Active Substance: SOMATROPIN
     Indication: GROWTH HORMONE DEFICIENCY
     Dosage: WITH A TOTAL DOSE OF 0.4 MG PER DAY
     Dates: start: 20140627
  2. SAIZEN [Suspect]
     Active Substance: SOMATROPIN
     Dosage: DOSE WAS INCREASED, TOTAL 0.6 MG PER DAY
     Dates: start: 20150104, end: 20150519

REACTIONS (1)
  - Papilloedema [Recovered/Resolved]

NARRATIVE: CASE EVENT DATE: 20160304
